FAERS Safety Report 5032492-1 (Version None)
Quarter: 2006Q2

REPORT INFORMATION
  Report Type: 
  Country: None (occurrence: None)
  Receive Date: 20060622
  Receipt Date: 20060607
  Transmission Date: 20061013
  Serious: Yes (Other)
  Sender: FDA-Public Use
  Company Number: DEWYE698907JUN06

PATIENT
  Sex: Female

DRUGS (2)
  1. ENBREL [Suspect]
     Indication: DRUG USE FOR UNKNOWN INDICATION
     Route: 058
     Dates: start: 20041201
  2. ENBREL [Suspect]
     Route: 058

REACTIONS (3)
  - HYPOAESTHESIA [None]
  - OPTIC NEURITIS [None]
  - PARAESTHESIA [None]
